FAERS Safety Report 4526067-8 (Version None)
Quarter: 2004Q4

REPORT INFORMATION
  Report Type: 
  Country: None (occurrence: None)
  Receive Date: 20041129
  Receipt Date: 20040722
  Transmission Date: 20050328
  Serious: Yes (Hospitalization, Other)
  Sender: FDA-Public Use
  Company Number: USA040772674

PATIENT
  Age: 41 Year
  Sex: Male
  Weight: 90 kg

DRUGS (2)
  1. ZYPREXA [Suspect]
     Indication: SCHIZOPHRENIA
     Dosage: 20 MG/1 DAY
     Dates: end: 20031221
  2. NAVANE [Concomitant]

REACTIONS (4)
  - CONSTIPATION [None]
  - DIABETIC KETOACIDOSIS [None]
  - NAUSEA [None]
  - VOMITING [None]
